FAERS Safety Report 18277435 (Version 1)
Quarter: 2020Q3

REPORT INFORMATION
  Report Type: Spontaneous
  Country: FR (occurrence: FR)
  Receive Date: 20200917
  Receipt Date: 20200917
  Transmission Date: 20201103
  Serious: Yes (Hospitalization)
  Sender: FDA-Public Use
  Company Number: NVSC2020FR252153

PATIENT
  Sex: Female

DRUGS (1)
  1. LOPRESSOR [Suspect]
     Active Substance: METOPROLOL TARTRATE
     Indication: MEDICATION ERROR
     Dosage: 100 MG
     Route: 048
     Dates: start: 20200727, end: 20200727

REACTIONS (2)
  - Bradycardia [Unknown]
  - Medication error [Unknown]

NARRATIVE: CASE EVENT DATE: 20200727
